FAERS Safety Report 5743014-1 (Version None)
Quarter: 2008Q2

REPORT INFORMATION
  Report Type: 
  Country: None (occurrence: None)
  Receive Date: 20080515
  Receipt Date: 20080515
  Transmission Date: 20081010
  Serious: Yes (Other)
  Sender: FDA-Public Use
  Company Number: None

PATIENT
  Age: 79 Year
  Sex: Female
  Weight: 64.4108 kg

DRUGS (1)
  1. RECLAST [Suspect]
     Indication: OSTEOPOROSIS
     Dosage: INFUSION ANNUAL
     Dates: start: 20080513, end: 20080513

REACTIONS (5)
  - IMMOBILE [None]
  - JOINT STIFFNESS [None]
  - PARAESTHESIA [None]
  - PARALYSIS [None]
  - SWELLING [None]
